FAERS Safety Report 9971799 (Version 1)
Quarter: 2014Q1

REPORT INFORMATION
  Report Type: Report from Study
  Country: US (occurrence: US)
  Receive Date: 20140306
  Receipt Date: 20140306
  Transmission Date: 20141002
  Serious: No
  Sender: FDA-Public Use
  Company Number: US-ABBVIE-13P-163-1147382-00

PATIENT
  Sex: Female

DRUGS (9)
  1. HUMIRA [Suspect]
     Indication: ARTHRITIS
     Dates: start: 201306, end: 20130729
  2. METHOTREXATE [Suspect]
     Indication: ARTHRITIS
     Dates: start: 201303
  3. OMEPRAZOLE [Concomitant]
     Indication: GASTROOESOPHAGEAL REFLUX DISEASE
  4. OXYBUTYNIN [Concomitant]
     Indication: HYPERTONIC BLADDER
  5. MELOXICAM [Concomitant]
     Indication: ARTHRITIS
  6. MONTELUKAST [Concomitant]
     Indication: ASTHMA
  7. FOLIC ACID [Concomitant]
     Indication: SUPPLEMENTATION THERAPY
  8. FLUCONAZOLE [Concomitant]
     Indication: PRODUCT USED FOR UNKNOWN INDICATION
  9. ZYRTEC [Concomitant]
     Indication: HYPERSENSITIVITY

REACTIONS (3)
  - Weight decreased [Not Recovered/Not Resolved]
  - Abdominal pain upper [Not Recovered/Not Resolved]
  - Diarrhoea [Not Recovered/Not Resolved]
